FAERS Safety Report 8954558 (Version 1)
Quarter: 2012Q4

REPORT INFORMATION
  Report Type: 
  Country: ZA (occurrence: ZA)
  Receive Date: 20121207
  Receipt Date: 20121207
  Transmission Date: 20130627
  Serious: Yes (Hospitalization)
  Sender: FDA-Public Use
  Company Number: ZA-ELI_LILLY_AND_COMPANY-ZA201211009119

PATIENT
  Age: 65 Year
  Sex: Female

DRUGS (2)
  1. HUMALOG 50% LISPRO, 50% NPL [Suspect]
     Dosage: UNK
     Dates: start: 201211
  2. HUMALOG 25% LISPRO, 75% NPL [Suspect]
     Dosage: UNK
     Dates: start: 201211

REACTIONS (2)
  - Hospitalisation [Unknown]
  - Incorrect drug dosage form administered [Recovered/Resolved]
